FAERS Safety Report 4897758-4 (Version None)
Quarter: 2006Q1

REPORT INFORMATION
  Report Type: 
  Country: None (occurrence: None)
  Receive Date: 20060130
  Receipt Date: 20060116
  Transmission Date: 20060701
  Serious: Yes (Hospitalization)
  Sender: FDA-Public Use
  Company Number: HQWYE914424DEC03

PATIENT
  Age: 74 Year
  Sex: Female
  Weight: 80.9 kg

DRUGS (2)
  1. MYLOTARG [Suspect]
     Indication: ACUTE MYELOID LEUKAEMIA
     Dosage: 14.31+ 14.4 MG 1X PER 1 DAY, INTRAVENOUS
     Route: 042
     Dates: start: 20030804, end: 20030804
  2. MYLOTARG [Suspect]
     Indication: ACUTE MYELOID LEUKAEMIA
     Dosage: 14.31+ 14.4 MG 1X PER 1 DAY, INTRAVENOUS
     Route: 042
     Dates: start: 20030818, end: 20030818

REACTIONS (6)
  - DIVERTICULUM [None]
  - ENTEROCOCCAL INFECTION [None]
  - FEBRILE NEUTROPENIA [None]
  - HAEMATOCHEZIA [None]
  - HAEMATURIA [None]
  - HAEMOGLOBIN DECREASED [None]
